FAERS Safety Report 16395189 (Version 1)
Quarter: 2019Q2

REPORT INFORMATION
  Report Type: Spontaneous
  Country: SE (occurrence: SE)
  Receive Date: 20190605
  Receipt Date: 20190605
  Transmission Date: 20190711
  Serious: Yes (Other)
  Sender: FDA-Public Use
  Company Number: SE-MYLANLABS-2019M1051816

PATIENT
  Age: 28 Year
  Sex: Male

DRUGS (10)
  1. SERTRALINE [Concomitant]
     Active Substance: SERTRALINE HYDROCHLORIDE
     Dosage: UNK
  2. LECROLYN [Concomitant]
     Dosage: UNK
  3. DYMISTA [Concomitant]
     Active Substance: AZELASTINE HYDROCHLORIDE\FLUTICASONE PROPIONATE
     Dosage: UNK
  4. MOMETASONE [Concomitant]
     Active Substance: MOMETASONE
     Dosage: UNK
  5. OPATANOL [Concomitant]
     Active Substance: OLOPATADINE
     Dosage: UNK
  6. PULMICORT TURBUHALER [Concomitant]
     Active Substance: BUDESONIDE
     Dosage: UNK
  7. BRICANYL [Concomitant]
     Active Substance: TERBUTALINE SULFATE
  8. MIRTAZAPIN [Concomitant]
     Active Substance: MIRTAZAPINE
     Dosage: UNK
  9. METHYLPHENIDATE. [Suspect]
     Active Substance: METHYLPHENIDATE
     Indication: ATTENTION DEFICIT/HYPERACTIVITY DISORDER
     Dosage: 36 MILLIGRAM
     Route: 048
     Dates: start: 20180920, end: 201810
  10. KESTINE [Concomitant]
     Active Substance: EBASTINE
     Dosage: UNK

REACTIONS (2)
  - Visual impairment [Unknown]
  - Skin reaction [Unknown]

NARRATIVE: CASE EVENT DATE: 20181004
